FAERS Safety Report 21340354 (Version 4)
Quarter: 2022Q4

REPORT INFORMATION
  Report Type: Spontaneous
  Country: US (occurrence: US)
  Receive Date: 20220916
  Receipt Date: 20221004
  Transmission Date: 20230113
  Serious: No
  Sender: FDA-Public Use
  Company Number: US-UNITED THERAPEUTICS-UNT-2022-018809

PATIENT
  Sex: Male
  Weight: 105.67 kg

DRUGS (8)
  1. TYVASO [Suspect]
     Active Substance: TREPROSTINIL
     Indication: Pulmonary arterial hypertension
     Dosage: UNK
     Dates: start: 20220804
  2. TYVASO [Suspect]
     Active Substance: TREPROSTINIL
     Dosage: 18 ?G, QID
     Dates: start: 202208
  3. TYVASO [Suspect]
     Active Substance: TREPROSTINIL
     Dosage: 24 ?G, QID
     Dates: start: 202208
  4. TYVASO [Suspect]
     Active Substance: TREPROSTINIL
     Dosage: 18 ?G
     Dates: start: 20220824
  5. TYVASO [Suspect]
     Active Substance: TREPROSTINIL
     Dosage: 12 ?G
     Dates: start: 20220825
  6. TYVASO [Suspect]
     Active Substance: TREPROSTINIL
     Dosage: 18 ?G, QID
     Dates: start: 2022
  7. TYVASO [Suspect]
     Active Substance: TREPROSTINIL
     Dosage: 18 ?G, QID
     Dates: start: 2022
  8. TADALAFIL [Concomitant]
     Active Substance: TADALAFIL
     Indication: Product used for unknown indication
     Dosage: UNK
     Route: 065

REACTIONS (17)
  - Oxygen saturation decreased [Not Recovered/Not Resolved]
  - Cough [Unknown]
  - Diarrhoea [Unknown]
  - Heart rate increased [Unknown]
  - Weight increased [Unknown]
  - Dyspnoea [Not Recovered/Not Resolved]
  - Anxiety [Not Recovered/Not Resolved]
  - Weight decreased [Unknown]
  - Dry mouth [Unknown]
  - Chromaturia [Unknown]
  - Drug tolerance decreased [Unknown]
  - Feeling abnormal [Unknown]
  - Nasal dryness [Unknown]
  - Fatigue [Not Recovered/Not Resolved]
  - Asthenia [Unknown]
  - Malaise [Unknown]
  - Product dose omission issue [Unknown]

NARRATIVE: CASE EVENT DATE: 20220101
